FAERS Safety Report 17960267 (Version 1)
Quarter: 2020Q2

REPORT INFORMATION
  Report Type: Spontaneous
  Country: US (occurrence: US)
  Receive Date: 20200629
  Receipt Date: 20200629
  Transmission Date: 20200714
  Serious: No
  Sender: FDA-Public Use
  Company Number: US-VIFOR (INTERNATIONAL) INC.-VIT-2020-06719

PATIENT
  Age: 50 Year
  Sex: Female

DRUGS (1)
  1. VELTASSA [Suspect]
     Active Substance: PATIROMER
     Indication: HYPERKALAEMIA
     Dosage: ONE 8.4 GRAM PACKET DISSOLVED INTO 1/3 CUP OF WATER (DRANK FULL AMOUNT)
     Route: 048
     Dates: start: 20170428

REACTIONS (3)
  - Diarrhoea [Unknown]
  - Constipation [Unknown]
  - Bowel movement irregularity [Not Recovered/Not Resolved]
